FAERS Safety Report 8377806-X (Version None)
Quarter: 2012Q2

REPORT INFORMATION
  Report Type: 
  Country: None (occurrence: None)
  Receive Date: 20120521
  Receipt Date: 20110514
  Transmission Date: 20120825
  Serious: Yes (Life-Threatening, Other)
  Sender: FDA-Public Use
  Company Number: CL-411-2012

PATIENT
  Age: 52 Year
  Sex: Female
  Weight: 88.7 kg

DRUGS (19)
  1. INSULIN HUMAN [Concomitant]
  2. VENLAFAXINE [Concomitant]
  3. AMITRIPTYLINE HCL [Concomitant]
  4. DOMPERIDONE [Concomitant]
  5. ENOXAPARIN [Concomitant]
  6. NOVO RAPID [Concomitant]
  7. FLUCONAZOLE [Suspect]
     Indication: SYSTEMIC CANDIDA
     Dosage: 400MG INTRAVENOUS
     Route: 042
     Dates: start: 20120425, end: 20120428
  8. HUMAN ACTRAPID (INSULIN HUMAN BIOSYNTHETIC [PYR] [Concomitant]
  9. ROSUVASTATIN [Concomitant]
  10. CALCIUM POLYSTYRENE SULPHONATE [Concomitant]
  11. CLOPIDOGREL [Concomitant]
  12. FENTANYL-100 [Concomitant]
  13. OXYCODONE HCL [Concomitant]
  14. SATIVEX [Concomitant]
  15. MOVIPREP [Concomitant]
  16. LANTUS [Concomitant]
  17. TEICOPLANIN [Concomitant]
  18. CO-AMOXICLAV (AMOXYCILLIN, POTASSIUM CLAVULANATE) [Concomitant]
  19. PREGABALIN [Concomitant]

REACTIONS (1)
  - HYPERKALAEMIA [None]
